FAERS Safety Report 16702312 (Version 1)
Quarter: 2019Q3

REPORT INFORMATION
  Report Type: Spontaneous
  Country: PL (occurrence: PL)
  Receive Date: 20190814
  Receipt Date: 20190814
  Transmission Date: 20191004
  Serious: Yes (Hospitalization)
  Sender: FDA-Public Use
  Company Number: PL-JNJFOC-20190812508

PATIENT
  Age: 13 Year
  Sex: Male
  Weight: 34 kg

DRUGS (1)
  1. HALOPERIDOL. [Suspect]
     Active Substance: HALOPERIDOL
     Indication: MUSCLE TWITCHING
     Dosage: DOSE: 4 MG (2 X 20 DROPS)
     Route: 048
     Dates: start: 20160712, end: 20160713

REACTIONS (7)
  - Torticollis [Recovered/Resolved]
  - Dyskinesia [Recovered/Resolved]
  - Off label use [Unknown]
  - Gaze palsy [Recovered/Resolved]
  - Blood pressure increased [Recovered/Resolved]
  - Muscle contractions involuntary [Recovered/Resolved]
  - Product use in unapproved indication [Unknown]

NARRATIVE: CASE EVENT DATE: 20160712
